FAERS Safety Report 5372793-0 (Version None)
Quarter: 2007Q2

REPORT INFORMATION
  Report Type: 
  Country: None (occurrence: None)
  Receive Date: 20070626
  Receipt Date: 20060223
  Transmission Date: 20071010
  Serious: Yes (Other)
  Sender: FDA-Public Use
  Company Number: 2006VX000235

PATIENT
  Age: 65 Year
  Sex: Female

DRUGS (3)
  1. DALMADORM ^ICN^ (FLURAZEPAM HYDROCHLORIDE) (30 MG) [Suspect]
     Dosage: 1200 MG;X1;
  2. BAYMYCARD (NISOLDIPINE) (10 MG) [Suspect]
     Dosage: 100 MG;X1;
  3. ZOPICLONE (ZOPICLONE) (7.5 MG) [Suspect]
     Dosage: 75 MG;X1;

REACTIONS (3)
  - HYPOTENSION [None]
  - INTENTIONAL OVERDOSE [None]
  - SUICIDE ATTEMPT [None]
